FAERS Safety Report 7990128-1 (Version None)
Quarter: 2011Q4

REPORT INFORMATION
  Report Type: 
  Country: None (occurrence: None)
  Receive Date: 20111219
  Receipt Date: 20110429
  Transmission Date: 20120403
  Serious: No
  Sender: FDA-Public Use
  Company Number: US-ASTRAZENECA-2011SE24942

PATIENT
  Age: 48 Year
  Sex: Male
  Weight: 120.2 kg

DRUGS (5)
  1. TOPROL-XL [Concomitant]
  2. CLARITIN [Concomitant]
  3. ALTACE [Concomitant]
  4. ASPIRIN [Concomitant]
  5. CRESTOR [Suspect]
     Indication: HYPERCHOLESTEROLAEMIA
     Route: 048

REACTIONS (2)
  - BRONCHITIS [None]
  - MYALGIA [None]
